FAERS Safety Report 12496707 (Version 1)
Quarter: 2016Q2

REPORT INFORMATION
  Report Type: Spontaneous
  Country: GB (occurrence: GB)
  Receive Date: 20160624
  Receipt Date: 20160624
  Transmission Date: 20160815
  Serious: Yes (Other)
  Sender: FDA-Public Use
  Company Number: GB-TEVA-669282ACC

PATIENT
  Age: 86 Year
  Sex: Female
  Weight: 64 kg

DRUGS (24)
  1. ESOMEPRAZOLE [Concomitant]
     Active Substance: ESOMEPRAZOLE
     Dosage: 1 DOSAGE FORMS DAILY;
     Dates: start: 20160519
  2. FERROUS SULFATE. [Concomitant]
     Active Substance: FERROUS SULFATE
     Dosage: 3 DOSAGE FORMS DAILY;
     Dates: start: 20140407
  3. VAGIFEM [Concomitant]
     Active Substance: ESTRADIOL
     Dosage: 1 DOSAGE FORMS DAILY; EVERY NIGHT FOR TWO WEEKS THEN TWICE A WEEK...
     Dates: start: 20150904, end: 20160519
  4. BUTRANS [Concomitant]
     Active Substance: BUPRENORPHINE
     Dosage: REMOVE OLD PATCH BEFORE APPLY...
     Dates: start: 20160324
  5. OMEPRAZOLE. [Concomitant]
     Active Substance: OMEPRAZOLE
     Dosage: 1 DOSAGE FORMS DAILY;
     Dates: start: 20160324, end: 20160519
  6. ALENDRONIC ACID [Concomitant]
     Active Substance: ALENDRONIC ACID
     Dosage: DO NOT TAKE THE ADCAL/ CALCIU...
     Dates: start: 20150615
  7. PARACETAMOL [Concomitant]
     Active Substance: ACETAMINOPHEN
     Dosage: TAKE ONE - TWO 4 TIMES/DAY
     Dates: start: 20141218, end: 20160425
  8. SIMVASTATIN. [Concomitant]
     Active Substance: SIMVASTATIN
     Dosage: 1 DOSAGE FORMS DAILY; AT NIGHT
     Dates: start: 20150126
  9. LACRI-LUBE [Concomitant]
     Dosage: 1 DOSAGE FORMS DAILY; AT NIGHT - BOTH EYES
     Dates: start: 20150609, end: 20160519
  10. LATANOPROST. [Concomitant]
     Active Substance: LATANOPROST
     Dosage: 1 GTT DAILY; AT NIGHT IN BOTH  EYES
     Dates: start: 20160126
  11. LIDOCAINE. [Concomitant]
     Active Substance: LIDOCAINE
     Dosage: USE AS DIRECTED
     Dates: start: 20160324, end: 20160430
  12. MORPHINE SULFATE. [Concomitant]
     Active Substance: MORPHINE SULFATE
     Dosage: 1 HOUR BEFORE ULCER DRESSING
     Dates: start: 20160504, end: 20160518
  13. TRAMADOL. [Suspect]
     Active Substance: TRAMADOL
     Dates: start: 20160531
  14. TEGADERM [Concomitant]
     Active Substance: 2-HYDROXYETHYL METHACRYLATE
     Dosage: USE AS DIRECTED
     Dates: start: 20160420, end: 20160421
  15. LAXIDO [Concomitant]
     Active Substance: POLYETHYLENE GLYCOL 3350\POTASSIUM CHLORIDE\SODIUM BICARBONATE\SODIUM CHLORIDE
     Dosage: 2 DOSAGE FORMS DAILY;
     Dates: start: 20150904
  16. ADCAL [Concomitant]
     Active Substance: CALCIUM CARBONATE
     Dosage: 2 DOSAGE FORMS DAILY;
     Dates: start: 20140407
  17. ASPIRIN. [Concomitant]
     Active Substance: ASPIRIN
     Dosage: 1 DOSAGE FORMS DAILY;
     Dates: start: 20141113
  18. CLARITHROMYCIN. [Concomitant]
     Active Substance: CLARITHROMYCIN
     Dosage: 2 DOSAGE FORMS DAILY;
     Dates: start: 20160523, end: 20160530
  19. COCODAMOL [Concomitant]
     Active Substance: ACETAMINOPHEN\CODEINE PHOSPHATE
     Dosage: 8 DOSAGE FORMS DAILY; (DO NO TAKE ANY OTHER CO-CODAMOL TABLETS WITH THIS)
     Dates: start: 20160419
  20. DOMPERIDONE [Concomitant]
     Active Substance: DOMPERIDONE
     Indication: NAUSEA
     Dosage: 3 DOSAGE FORMS DAILY;
     Dates: start: 20160519
  21. FLUCLOXACILLIN [Concomitant]
     Active Substance: FLUCLOXACILLIN
     Dosage: 4 DOSAGE FORMS DAILY;
     Dates: start: 20160513, end: 20160520
  22. HYLO-FORTE [Concomitant]
     Active Substance: HYALURONATE SODIUM
     Dosage: 4 GTT DAILY; BOTH EYES
     Dates: start: 20150806
  23. BETAMETHASONE VALERATE. [Concomitant]
     Active Substance: BETAMETHASONE VALERATE
     Dosage: 2 DOSAGE FORMS DAILY;
     Dates: start: 20151214
  24. OXYBUTYNIN [Concomitant]
     Active Substance: OXYBUTYNIN
     Dosage: 1 DOSAGE FORMS DAILY; AT 11PM
     Dates: start: 20151019

REACTIONS (1)
  - Repetitive strain injury [Unknown]

NARRATIVE: CASE EVENT DATE: 20160601
